FAERS Safety Report 16311629 (Version 1)
Quarter: 2019Q2

REPORT INFORMATION
  Report Type: Spontaneous
  Country: US (occurrence: US)
  Receive Date: 20190514
  Receipt Date: 20190514
  Transmission Date: 20190711
  Serious: Yes (Hospitalization, Other)
  Sender: FDA-Public Use
  Company Number: US-GILEAD-2019-0407019

PATIENT
  Sex: Male

DRUGS (18)
  1. RISPERIDONE. [Concomitant]
     Active Substance: RISPERIDONE
  2. OXYBUTYNIN. [Concomitant]
     Active Substance: OXYBUTYNIN CHLORIDE
  3. POLYETHYLENE GLYCOL [Concomitant]
     Active Substance: POLYETHYLENE GLYCOLS
  4. TAMSULOSIN [Concomitant]
     Active Substance: TAMSULOSIN
  5. FINASTERIDE. [Concomitant]
     Active Substance: FINASTERIDE
  6. LANTUS [Concomitant]
     Active Substance: INSULIN GLARGINE
  7. OMEPRAZOLE. [Concomitant]
     Active Substance: OMEPRAZOLE
  8. ATORVASTATIN [Concomitant]
     Active Substance: ATORVASTATIN
  9. INSULIN ASPART [Concomitant]
     Active Substance: INSULIN ASPART
  10. NICOTINE. [Concomitant]
     Active Substance: NICOTINE
  11. LOSARTAN. [Concomitant]
     Active Substance: LOSARTAN
  12. ASPIRIN EC [Concomitant]
     Active Substance: ASPIRIN
  13. FERROUS SULFATE. [Concomitant]
     Active Substance: FERROUS SULFATE
  14. METFORMIN [Concomitant]
     Active Substance: METFORMIN HYDROCHLORIDE
  15. HARVONI [Suspect]
     Active Substance: LEDIPASVIR\SOFOSBUVIR
     Indication: HEPATITIS C
     Dosage: 1 DOSAGE FORM, QD
     Route: 048
     Dates: start: 20161103, end: 20170126
  16. MIRTAZAPINE. [Concomitant]
     Active Substance: MIRTAZAPINE
  17. PRAZOSIN. [Concomitant]
     Active Substance: PRAZOSIN
  18. TRAZODONE [Concomitant]
     Active Substance: TRAZODONE HYDROCHLORIDE

REACTIONS (9)
  - Electrocardiogram ST segment depression [Unknown]
  - Ventricular hypokinesia [Unknown]
  - Drug resistance [Unknown]
  - Cough [Unknown]
  - Musculoskeletal pain [Unknown]
  - Viral upper respiratory tract infection [Unknown]
  - Urinary tract infection [Unknown]
  - Tricuspid valve incompetence [Unknown]
  - Electrocardiogram T wave inversion [Unknown]
